FAERS Safety Report 6303118-1 (Version None)
Quarter: 2009Q3

REPORT INFORMATION
  Report Type: 
  Country: None (occurrence: None)
  Receive Date: 20090810
  Receipt Date: 20090805
  Transmission Date: 20100115
  Serious: Yes (Life-Threatening, Hospitalization)
  Sender: FDA-Public Use
  Company Number: NZ-ROCHE-648457

PATIENT
  Sex: Male
  Weight: 97 kg

DRUGS (10)
  1. MYCOPHENOLATE MOFETIL [Suspect]
     Indication: IMMUNOSUPPRESSION
     Route: 048
     Dates: start: 20060210
  2. PREDNISONE TAB [Concomitant]
     Indication: IMMUNOSUPPRESSION
     Route: 048
     Dates: start: 20001004
  3. CYCLOSPORINE [Concomitant]
     Indication: IMMUNOSUPPRESSION
     Route: 048
     Dates: start: 20001003
  4. LABETALOL HCL [Concomitant]
  5. DILTIAZEM [Concomitant]
     Indication: HYPERTENSION
     Route: 048
     Dates: start: 20001008
  6. OMEPRAZOLE [Concomitant]
     Indication: GASTRIC ULCER
     Route: 048
  7. ALLOPURINOL [Concomitant]
     Indication: GOUT
     Route: 048
  8. CALCITRIOL [Concomitant]
     Dates: start: 20040122
  9. ALENDRONATE SODIUM [Concomitant]
     Indication: OSTEOPOROSIS
     Dosage: DRUG NAME REPORTED AS: ALENDRONATE
     Route: 048
  10. SIMVASTATIN [Concomitant]
     Indication: LIPIDS
     Dates: start: 20090716

REACTIONS (1)
  - RENAL CELL CARCINOMA [None]
